FAERS Safety Report 17325156 (Version 1)
Quarter: 2020Q1

REPORT INFORMATION
  Report Type: Spontaneous
  Country: NL (occurrence: NL)
  Receive Date: 20200127
  Receipt Date: 20200127
  Transmission Date: 20200409
  Serious: Yes (Disabling)
  Sender: FDA-Public Use
  Company Number: NL-MYLANLABS-2020M1008522

PATIENT
  Age: 44 Year
  Sex: Female

DRUGS (8)
  1. ESOMEPRAZOL                        /01479301/ [Concomitant]
     Active Substance: ESOMEPRAZOLE
     Dosage: 1DD1
  2. COLECALCIFEROL [Concomitant]
     Active Substance: CHOLECALCIFEROL
     Dosage: (DRANK) 1 X PER 2 WEEKS 25,000 INTERNATIONAL UNITS
  3. CANDESARTAN. [Suspect]
     Active Substance: CANDESARTAN
     Indication: MIGRAINE
     Dosage: 1 DOSAGE FORM, QD (1D36MG)
     Route: 048
     Dates: start: 2015, end: 20191012
  4. AMITRIPTYLINE HCL [Concomitant]
     Active Substance: AMITRIPTYLINE
     Dosage: 1DD2
  5. ELETRIPTAN. [Concomitant]
     Active Substance: ELETRIPTAN
     Dosage: 1DD1
  6. CODEINE [Concomitant]
     Active Substance: CODEINE
     Dosage: 1DD1
  7. FOSFOMYCINE [Concomitant]
     Active Substance: FOSFOMYCIN
     Dosage: 3 GRAM, QD (1DD1)
  8. DICLOFENAC NATRIUM [Concomitant]
     Active Substance: DICLOFENAC SODIUM
     Dosage: WHEN NEEDED 2X PER DAY 1 PIECE

REACTIONS (1)
  - Muscle spasms [Recovered/Resolved with Sequelae]

NARRATIVE: CASE EVENT DATE: 2016
